FAERS Safety Report 7334391-9 (Version None)
Quarter: 2011Q1

REPORT INFORMATION
  Report Type: 
  Country: None (occurrence: None)
  Receive Date: 20110307
  Receipt Date: 20110222
  Transmission Date: 20110831
  Serious: Yes (Hospitalization, Other)
  Sender: FDA-Public Use
  Company Number: PHHY2010ZA90440

PATIENT
  Sex: Female

DRUGS (2)
  1. GLEEVEC [Suspect]
     Dosage: 200 MG, UNK
  2. GLEEVEC [Suspect]
     Dosage: 300 MG, UNK
     Dates: start: 20100824

REACTIONS (7)
  - AXILLARY PAIN [None]
  - PNEUMONIA [None]
  - THROMBOPHLEBITIS [None]
  - FOLLICULITIS [None]
  - RASH [None]
  - OEDEMA PERIPHERAL [None]
  - TUBERCULOSIS [None]
